FAERS Safety Report 9631809 (Version 3)
Quarter: 2013Q4

REPORT INFORMATION
  Report Type: Spontaneous
  Country: US (occurrence: US)
  Receive Date: 20131018
  Receipt Date: 20131223
  Transmission Date: 20140711
  Serious: Yes (Death, Life-Threatening, Other)
  Sender: FDA-Public Use
  Company Number: US-009507513-1310USA007748

PATIENT
  Age: 67 Year
  Sex: Female

DRUGS (3)
  1. EMEND [Suspect]
     Indication: NEOPLASM MALIGNANT
     Dosage: 150 MG, ONCE
     Route: 042
     Dates: start: 20130917, end: 20130917
  2. TAXOL [Concomitant]
     Dosage: UNK
  3. CARBOPLATIN [Concomitant]
     Dosage: UNK

REACTIONS (1)
  - Neoplasm malignant [Fatal]
